FAERS Safety Report 12308510 (Version 1)
Quarter: 2016Q2

REPORT INFORMATION
  Report Type: Report from Study
  Country: CN (occurrence: CN)
  Receive Date: 20160427
  Receipt Date: 20160427
  Transmission Date: 20160815
  Serious: Yes (Death)
  Sender: FDA-Public Use
  Company Number: CN-ROCHE-1554344

PATIENT
  Sex: Male
  Weight: 50 kg

DRUGS (1)
  1. AVASTIN [Suspect]
     Active Substance: BEVACIZUMAB
     Indication: COLON CANCER
     Route: 041
     Dates: start: 20141125, end: 20150702

REACTIONS (7)
  - Stoma site haemorrhage [Unknown]
  - Epistaxis [Unknown]
  - Marasmus [Unknown]
  - Condition aggravated [Fatal]
  - Decreased appetite [Recovering/Resolving]
  - Weight decreased [Unknown]
  - General physical health deterioration [Unknown]
